FAERS Safety Report 5234118-0 (Version None)
Quarter: 2007Q1

REPORT INFORMATION
  Report Type: 
  Country: None (occurrence: None)
  Receive Date: 20070208
  Receipt Date: 20070201
  Transmission Date: 20070707
  Serious: Yes (Other)
  Sender: FDA-Public Use
  Company Number: GB-PFIZER INC-2007009499

PATIENT
  Age: 37 Year
  Sex: Female
  Weight: 77 kg

DRUGS (7)
  1. PIROXICAM [Suspect]
     Indication: PROCEDURAL PAIN
     Route: 048
     Dates: start: 20070110, end: 20070110
  2. FENTANYL [Concomitant]
     Dosage: DAILY DOSE:175MCG
     Route: 042
     Dates: start: 20070110, end: 20070110
  3. IBUPROFEN [Concomitant]
     Indication: ARTHRALGIA
     Route: 048
  4. ISOFLURANE [Concomitant]
     Dates: start: 20070110, end: 20070110
  5. ONDANSETRON [Concomitant]
     Route: 042
     Dates: start: 20070110, end: 20070110
  6. PARACETAMOL [Concomitant]
     Route: 042
     Dates: start: 20070110, end: 20070110
  7. PROPOFOL [Concomitant]
     Route: 042
     Dates: start: 20070110, end: 20070110

REACTIONS (1)
  - EXTRASYSTOLES [None]
